FAERS Safety Report 20420810 (Version 1)
Quarter: 2022Q1

REPORT INFORMATION
  Report Type: Spontaneous
  Country: US (occurrence: None)
  Receive Date: 20220202
  Receipt Date: 20220202
  Transmission Date: 20220423
  Serious: Yes (Hospitalization)
  Sender: FDA-Public Use
  Company Number: None

PATIENT
  Age: 9 Year
  Sex: Male

DRUGS (1)
  1. AFINITOR [Suspect]
     Active Substance: EVEROLIMUS
     Dosage: 7.5MG DAILY ORAL?
     Route: 048
     Dates: start: 201911

REACTIONS (2)
  - Viral infection [None]
  - Arthralgia [None]

NARRATIVE: CASE EVENT DATE: 20211223
